FAERS Safety Report 17076540 (Version 2)
Quarter: 2020Q1

REPORT INFORMATION
  Report Type: Spontaneous
  Country: US (occurrence: US)
  Receive Date: 20191126
  Receipt Date: 20200129
  Transmission Date: 20200409
  Serious: No
  Sender: FDA-Public Use
  Company Number: US-SA-2019SA322166

PATIENT
  Age: 76 Year
  Sex: Female

DRUGS (2)
  1. LANTUS SOLOSTAR [Suspect]
     Active Substance: INSULIN GLARGINE
     Dosage: 38 UNITS IN THE MORNING AND 18 OR 20 UNITS AT NIGHT
     Route: 065
  2. LANTUS SOLOSTAR [Suspect]
     Active Substance: INSULIN GLARGINE
     Dosage: INCREASE HER DOSE OF LANTUS 2 OR 3 UNITS EACH DAY
     Route: 065

REACTIONS (7)
  - Product dose omission [Unknown]
  - Blood glucose increased [Unknown]
  - Pain [Unknown]
  - Cough [Unknown]
  - Rotator cuff syndrome [Unknown]
  - Inappropriate schedule of product administration [Unknown]
  - Fall [Unknown]
